FAERS Safety Report 4335747-9 (Version None)
Quarter: 2004Q2

REPORT INFORMATION
  Report Type: 
  Country: None (occurrence: None)
  Receive Date: 20040409
  Receipt Date: 20040318
  Transmission Date: 20050107
  Serious: Yes (Other)
  Sender: FDA-Public Use
  Company Number: PHNU2004DE01270

PATIENT
  Age: 67 Year
  Sex: Female

DRUGS (3)
  1. PROVAS COMP [Suspect]
     Indication: HYPERTENSION
     Dosage: 1 DF, QD
     Route: 048
     Dates: start: 20030512, end: 20030630
  2. PINDOLOL [Suspect]
     Indication: HYPERTENSION
     Dosage: 7.5 MG, QD
     Route: 048
     Dates: start: 19850101
  3. ANTIDIABETICS [Concomitant]

REACTIONS (3)
  - DIABETES MELLITUS [None]
  - PSORIASIS [None]
  - WEIGHT INCREASED [None]
